FAERS Safety Report 7813843-9 (Version None)
Quarter: 2011Q4

REPORT INFORMATION
  Report Type: 
  Country: None (occurrence: None)
  Receive Date: 20111014
  Receipt Date: 20111005
  Transmission Date: 20120403
  Serious: Yes (Hospitalization)
  Sender: FDA-Public Use
  Company Number: US-US-EMD SERONO, INC.-232175J10USA

PATIENT
  Sex: Female
  Weight: 67 kg

DRUGS (3)
  1. REBIF [Suspect]
     Indication: MULTIPLE SCLEROSIS
     Dates: start: 20070101, end: 20110801
  2. DETROL [Concomitant]
     Indication: URINARY INCONTINENCE
  3. ANTIDEPRESSANT [Concomitant]
     Indication: DEPRESSION

REACTIONS (2)
  - MULTIPLE SCLEROSIS RELAPSE [None]
  - DEPRESSION [None]
